FAERS Safety Report 15600449 (Version 1)
Quarter: 2018Q4

REPORT INFORMATION
  Report Type: Report from Study
  Country: DE (occurrence: DE)
  Receive Date: 20181109
  Receipt Date: 20181109
  Transmission Date: 20190205
  Serious: Yes (Hospitalization)
  Sender: FDA-Public Use
  Company Number: DE-BIOGEN-2018BI00578296

PATIENT
  Sex: Female

DRUGS (1)
  1. ZINBRYTA [Suspect]
     Active Substance: DACLIZUMAB
     Indication: MULTIPLE SCLEROSIS
     Route: 058
     Dates: start: 20170401, end: 201712

REACTIONS (3)
  - Bronchitis bacterial [Recovered/Resolved]
  - Transaminases increased [Recovered/Resolved]
  - Chlamydial infection [Recovered/Resolved]

NARRATIVE: CASE EVENT DATE: 2017
